FAERS Safety Report 17846439 (Version 1)
Quarter: 2020Q2

REPORT INFORMATION
  Report Type: Spontaneous
  Country: ES (occurrence: ES)
  Receive Date: 20200601
  Receipt Date: 20200601
  Transmission Date: 20200714
  Serious: Yes (Hospitalization)
  Sender: FDA-Public Use
  Company Number: ES-TEVA-2020-ES-1241777

PATIENT
  Age: 81 Year
  Sex: Female

DRUGS (2)
  1. HIDROXICLOROQUINA (2143A) [Suspect]
     Active Substance: HYDROXYCHLOROQUINE
     Indication: COVID-19 PNEUMONIA
     Dosage: 400 MILLIGRAM DAILY;
     Route: 048
     Dates: start: 20200419, end: 20200424
  2. AMOXICILINA CLAVULANICO [Suspect]
     Active Substance: AMOXICILLIN\CLAVULANATE POTASSIUM
     Dosage: 1 GR EVERY 12 HOURS X 5 DAYS FOLLOWED BY 1GR EVERY 8 HOURS X 6 DAYS
     Route: 042
     Dates: start: 20200417, end: 20200427

REACTIONS (3)
  - Pancytopenia [Not Recovered/Not Resolved]
  - Hepatic encephalopathy [Not Recovered/Not Resolved]
  - Condition aggravated [Not Recovered/Not Resolved]

NARRATIVE: CASE EVENT DATE: 20200427
